FAERS Safety Report 24256524 (Version 1)
Quarter: 2024Q3

REPORT INFORMATION
  Report Type: Spontaneous
  Country: US (occurrence: US)
  Receive Date: 20240828
  Receipt Date: 20240828
  Transmission Date: 20241017
  Serious: No
  Sender: RECKITT BENCKISER
  Company Number: US-PROD-AS2-212756134-RB-134211-2023

PATIENT
  Age: 51 Year
  Sex: Male

DRUGS (7)
  1. MUCINEX [Suspect]
     Active Substance: GUAIFENESIN
     Indication: Nasopharyngitis
     Dosage: UNK
     Route: 065
  2. MUCINEX [Suspect]
     Active Substance: GUAIFENESIN
     Indication: Cough
  3. MUCINEX [Suspect]
     Active Substance: GUAIFENESIN
     Indication: Influenza
  4. SUDAFED [Concomitant]
     Active Substance: PSEUDOEPHEDRINE HYDROCHLORIDE
     Indication: Nasopharyngitis
     Dosage: UNK
     Route: 065
  5. SUDAFED [Concomitant]
     Active Substance: PSEUDOEPHEDRINE HYDROCHLORIDE
     Indication: Sinusitis
  6. ASPIRIN\CHLORPHENIRAMINE MALEATE [Suspect]
     Active Substance: ASPIRIN\CHLORPHENIRAMINE MALEATE
     Indication: Nasopharyngitis
     Dosage: UNK
     Route: 065
  7. ASPIRIN\CHLORPHENIRAMINE MALEATE [Suspect]
     Active Substance: ASPIRIN\CHLORPHENIRAMINE MALEATE
     Indication: Sinusitis

REACTIONS (2)
  - Condition aggravated [Recovered/Resolved]
  - Drug ineffective [Recovered/Resolved]
